FAERS Safety Report 10144702 (Version 1)
Quarter: 2014Q2

REPORT INFORMATION
  Report Type: Spontaneous
  Country: US (occurrence: US)
  Receive Date: 20140430
  Receipt Date: 20140430
  Transmission Date: 20141212
  Serious: No
  Sender: FDA-Public Use
  Company Number: US-SANOFI-AVENTIS-2013SA084601

PATIENT
  Age: 57 Year
  Sex: Female
  Weight: 99.79 kg

DRUGS (3)
  1. LOVENOX [Suspect]
     Indication: THROMBOSIS
     Route: 051
     Dates: start: 20130809, end: 20130819
  2. WARFARIN [Concomitant]
  3. REMICADE [Concomitant]
     Route: 065

REACTIONS (4)
  - Pain in extremity [Not Recovered/Not Resolved]
  - Blood test abnormal [Not Recovered/Not Resolved]
  - Injection site pain [Not Recovered/Not Resolved]
  - Injection site discolouration [Not Recovered/Not Resolved]
